FAERS Safety Report 6750673 (Version 2)
Quarter: 2020Q3

REPORT INFORMATION
  Report Type: Report from Study
  Country: US (occurrence: US)
  Receive Date: 20080908
  Receipt Date: 20081006
  Transmission Date: 20201104
  Serious: Yes (Other)
  Sender: FDA-Public Use
  Company Number: US-ROCHE-583313

PATIENT
  Age: 61 Year
  Sex: Female

DRUGS (12)
  1. ATENOLOL. [Concomitant]
     Active Substance: ATENOLOL
  2. ZOCOR [Concomitant]
     Active Substance: SIMVASTATIN
  3. VIVELLE?DOT [Concomitant]
     Active Substance: ESTRADIOL
     Dosage: EVERY WEDNESDAY AND SUNDAY
  4. CALCIUM/VITAMIN D [Concomitant]
     Active Substance: CALCIUM\VITAMIN D
     Dosage: DRUG REPORTED AS CALCIUM PLUS D4
  5. FOLIC ACID. [Concomitant]
     Active Substance: FOLIC ACID
  6. IBANDRONIC ACID. [Suspect]
     Active Substance: IBANDRONIC ACID
     Route: 042
     Dates: start: 20071114
  7. CELEBREX [Concomitant]
     Active Substance: CELECOXIB
  8. VITAMIN D2 [Concomitant]
     Active Substance: ERGOCALCIFEROL
  9. ASPIRIN. [Concomitant]
     Active Substance: ASPIRIN
  10. IBANDRONIC ACID. [Suspect]
     Active Substance: IBANDRONIC ACID
     Indication: OSTEOPENIA
     Dosage: FORMULATION: INJECTION
     Route: 048
     Dates: start: 2007, end: 2007
  11. PAXIL [Concomitant]
     Active Substance: PAROXETINE HYDROCHLORIDE
  12. XANAX [Concomitant]
     Active Substance: ALPRAZOLAM

REACTIONS (1)
  - Exostosis [Unknown]
